FAERS Safety Report 8124797-2 (Version None)
Quarter: 2012Q1

REPORT INFORMATION
  Report Type: 
  Country: None (occurrence: None)
  Receive Date: 20120209
  Receipt Date: 20120203
  Transmission Date: 20120608
  Serious: Yes (Other)
  Sender: FDA-Public Use
  Company Number: JP-SANOFI-AVENTIS-2011SA078896

PATIENT
  Age: 79 Year
  Sex: Male

DRUGS (6)
  1. CARVEDILOL [Concomitant]
  2. PLAVIX [Suspect]
     Route: 048
  3. ISOSORBIDE DINITRATE [Concomitant]
  4. LOSARTAN POTASSIUM [Concomitant]
  5. PLAVIX [Suspect]
     Route: 048
  6. ASPIRIN [Concomitant]

REACTIONS (1)
  - URINARY RETENTION [None]
